FAERS Safety Report 7733175-7 (Version None)
Quarter: 2011Q3

REPORT INFORMATION
  Report Type: 
  Country: None (occurrence: None)
  Receive Date: 20110902
  Receipt Date: 20110902
  Transmission Date: 20111222
  Serious: Yes (Other)
  Sender: FDA-Public Use
  Company Number: None

PATIENT
  Sex: Male
  Weight: 73.4827 kg

DRUGS (1)
  1. PLAVIX [Suspect]
     Indication: THROMBOSIS PROPHYLAXIS
     Dosage: TABLET DAILY ORAL  DOSE REDUCED MAY 2011 1 TAB. EVERY OTHER DAY
     Route: 048
     Dates: start: 20101125

REACTIONS (5)
  - FATIGUE [None]
  - FAECES DISCOLOURED [None]
  - CONTUSION [None]
  - CONSTIPATION [None]
  - ASTHENIA [None]
